FAERS Safety Report 15530382 (Version 2)
Quarter: 2018Q4

REPORT INFORMATION
  Report Type: Spontaneous
  Country: US (occurrence: US)
  Receive Date: 20181018
  Receipt Date: 20181031
  Transmission Date: 20190205
  Serious: Yes (Other)
  Sender: FDA-Public Use
  Company Number: US-TEVA-2018-US-962907

PATIENT
  Sex: Female

DRUGS (5)
  1. CALCIUM [Suspect]
     Active Substance: CALCIUM
     Route: 065
  2. CARBILEVODTAB-A [Interacting]
     Active Substance: CARBIDOPA\LEVODOPA
     Indication: DYSKINESIA
  3. OMEGA 3 [Suspect]
     Active Substance: OMEGA-3 FATTY ACIDS
     Route: 065
  4. CARBILEVODTAB-A [Suspect]
     Active Substance: CARBIDOPA\LEVODOPA
     Indication: PARKINSON^S DISEASE
     Dosage: 4.8 DOSAGE FORMS DAILY; FORM STRENGTH: CARBIDOPA 25 MG/ LEVODOPA 250 MG?1DF= 1 TABLET
     Route: 065
     Dates: start: 2010, end: 20181022
  5. VITAMIN D [Suspect]
     Active Substance: CHOLECALCIFEROL
     Route: 065

REACTIONS (11)
  - Back pain [Recovering/Resolving]
  - Peripheral coldness [Unknown]
  - Drug interaction [Unknown]
  - Musculoskeletal pain [Recovering/Resolving]
  - Pain in extremity [Unknown]
  - Blood potassium increased [Unknown]
  - Dyskinesia [Recovered/Resolved]
  - Muscle spasms [Unknown]
  - Drug ineffective [Unknown]
  - Nasopharyngitis [Unknown]
  - Poor peripheral circulation [Unknown]

NARRATIVE: CASE EVENT DATE: 201809
